FAERS Safety Report 4912774-1 (Version None)
Quarter: 2006Q1

REPORT INFORMATION
  Report Type: 
  Country: None (occurrence: None)
  Receive Date: 20060213
  Receipt Date: 20060131
  Transmission Date: 20060701
  Serious: Yes (Other)
  Sender: FDA-Public Use
  Company Number: 2005103691

PATIENT
  Age: 31 Year
  Sex: Female

DRUGS (1)
  1. DEPO-PROVERA [Suspect]
     Indication: CONTRACEPTION
     Dosage: SEE IMAGE
     Route: 030
     Dates: start: 20051026, end: 20051026

REACTIONS (7)
  - AMENORRHOEA [None]
  - GALLBLADDER DISORDER [None]
  - MENORRHAGIA [None]
  - MIGRAINE [None]
  - OEDEMA [None]
  - POST PROCEDURAL COMPLICATION [None]
  - STRESS [None]
